FAERS Safety Report 15571963 (Version 2)
Quarter: 2019Q2

REPORT INFORMATION
  Report Type: Spontaneous
  Country: US (occurrence: US)
  Receive Date: 20181031
  Receipt Date: 20190501
  Transmission Date: 20190711
  Serious: No
  Sender: FDA-Public Use
  Company Number: US-EMMAUS MEDICAL, INC.-EMM201810-000693

PATIENT
  Sex: Male

DRUGS (1)
  1. ENDARI [Suspect]
     Active Substance: GLUTAMINE
     Indication: SICKLE CELL DISEASE
     Dosage: 3 PACKETS IN THE MORNING AND 3 AT NIGHT.
     Route: 048
     Dates: start: 20180605

REACTIONS (2)
  - Underdose [Recovered/Resolved]
  - Sickle cell anaemia with crisis [Recovered/Resolved]
